FAERS Safety Report 8285419 (Version 8)
Quarter: 2013Q3

REPORT INFORMATION
  Report Type: Report from Study
  Country: JP (occurrence: JP)
  Receive Date: 20111213
  Receipt Date: 20130910
  Transmission Date: 20140515
  Serious: Yes (Life-Threatening, Hospitalization, Other)
  Sender: FDA-Public Use
  Company Number: JP-JNJFOC-20111202003

PATIENT
  Age: 67 Year
  Sex: Male
  Weight: 74 kg

DRUGS (26)
  1. USTEKINUMAB [Suspect]
     Indication: PSORIASIS
     Route: 058
     Dates: start: 20110803, end: 20110803
  2. USTEKINUMAB [Suspect]
     Indication: PSORIASIS
     Route: 058
     Dates: start: 20110706, end: 20110706
  3. USTEKINUMAB [Suspect]
     Indication: PSORIASIS
     Route: 058
     Dates: start: 201106
  4. PREDONINE [Suspect]
     Indication: PRODUCT USED FOR UNKNOWN INDICATION
     Route: 050
     Dates: start: 20111014, end: 20111027
  5. PREDONINE [Suspect]
     Indication: PRODUCT USED FOR UNKNOWN INDICATION
     Route: 048
     Dates: start: 20111028, end: 20111228
  6. KERATINAMIN [Concomitant]
     Indication: PSORIASIS
     Route: 061
  7. HUMULIN INSULIN [Concomitant]
     Route: 058
  8. LEVEMIR [Concomitant]
     Route: 058
  9. MICARDIS [Concomitant]
     Route: 048
  10. LASIX [Concomitant]
     Route: 048
  11. INSULIN [Concomitant]
     Route: 058
  12. CICLOSPORIN [Concomitant]
     Indication: PSORIASIS
     Route: 048
     Dates: start: 20110706, end: 20110805
  13. CICLOSPORIN [Concomitant]
     Indication: PSORIASIS
     Route: 048
     Dates: start: 201107
  14. GLIMEPIRIDE [Concomitant]
     Route: 048
  15. SENNOSIDE [Concomitant]
     Route: 048
  16. BROTIZOLAM [Concomitant]
     Route: 048
  17. ALLEGRA [Concomitant]
     Indication: PSORIASIS
     Route: 048
  18. MECOBALAMIN [Concomitant]
     Route: 048
  19. NEUROTROPIN [Concomitant]
     Route: 048
  20. REBAMIPIDE [Concomitant]
     Route: 048
  21. HYDROCORTISONE BUTYRATE [Concomitant]
     Indication: PSORIASIS
     Route: 061
  22. BETAMETHASONE BUTYRATE [Concomitant]
     Indication: PSORIASIS
     Route: 061
  23. HEPARINOID [Concomitant]
     Indication: PSORIASIS
     Route: 061
  24. LIDOMEX [Concomitant]
     Indication: PSORIASIS
     Route: 061
  25. ETRETINATE [Concomitant]
     Indication: PSORIASIS
     Route: 065
     Dates: end: 201107
  26. NON-STEROIDAL ANITI-INFLAMMATORY DRUGS [Concomitant]
     Route: 065

REACTIONS (3)
  - Eosinophilic pneumonia [Recovered/Resolved]
  - Cellulitis [Recovered/Resolved]
  - Gastric ulcer [Recovering/Resolving]
